FAERS Safety Report 7930870-1 (Version None)
Quarter: 2011Q4

REPORT INFORMATION
  Report Type: 
  Country: None (occurrence: None)
  Receive Date: 20111117
  Receipt Date: 20111117
  Transmission Date: 20120403
  Serious: Yes (Hospitalization)
  Sender: FDA-Public Use
  Company Number: None

PATIENT
  Sex: Male
  Weight: 78.4 kg

DRUGS (1)
  1. CISPLATIN [Suspect]
     Dosage: 191 MG
     Dates: end: 20080714

REACTIONS (8)
  - HYPOTENSION [None]
  - VOMITING [None]
  - MUCOSAL INFLAMMATION [None]
  - DEHYDRATION [None]
  - DEVICE OCCLUSION [None]
  - PAIN [None]
  - NAUSEA [None]
  - ASTHENIA [None]
